FAERS Safety Report 10069641 (Version 2)
Quarter: 2014Q2

REPORT INFORMATION
  Report Type: Spontaneous
  Country: US (occurrence: US)
  Receive Date: 20140410
  Receipt Date: 20140428
  Transmission Date: 20141212
  Serious: Yes (Other)
  Sender: FDA-Public Use
  Company Number: US-SHIRE-US201400942

PATIENT
  Age: 13 Year
  Sex: Female
  Weight: 43.99 kg

DRUGS (8)
  1. VYVANSE [Suspect]
     Indication: ATTENTION DEFICIT/HYPERACTIVITY DISORDER
     Dosage: 20 MG, 1X/DAY:QD
     Route: 048
     Dates: start: 20140311, end: 20140317
  2. VENLAFAXINE HYDROCHLORIDE XR [Concomitant]
     Indication: PANIC DISORDER
     Dosage: 150 MG, 1X/DAY:QD
     Route: 048
     Dates: start: 20120310
  3. VENLAFAXINE HYDROCHLORIDE XR [Concomitant]
     Dosage: 37.5 MG, 1X/DAY:QD
     Route: 048
     Dates: start: 20140225
  4. CLONAZEPAM [Concomitant]
     Indication: PANIC DISORDER
     Dosage: UNK (1/2 TO 3/4, ONE MG TABLET), AS REQ^D ( Q 6 HOURS PRN )
     Route: 060
  5. CLONAZEPAM [Concomitant]
     Indication: ANXIETY
  6. DIPHENHYDRAMINE [Concomitant]
     Indication: ANXIETY
     Dosage: 12.5 MG (5CC/2.5MG PER ML), AS REQ^D
     Route: 048
     Dates: start: 20140225
  7. DIPHENHYDRAMINE [Concomitant]
     Indication: PANIC DISORDER
     Dosage: 25 MG, 4X/DAY:QID (Q 6 HOURS)
     Route: 065
     Dates: start: 2014
  8. DIPHENHYDRAMINE [Concomitant]
     Indication: URTICARIA

REACTIONS (1)
  - Urticaria [Not Recovered/Not Resolved]
